FAERS Safety Report 4834466-X (Version None)
Quarter: 2005Q4

REPORT INFORMATION
  Report Type: 
  Country: None (occurrence: None)
  Receive Date: 20051122
  Receipt Date: 20041207
  Transmission Date: 20060501
  Serious: No
  Sender: FDA-Public Use
  Company Number: US-BRISTOL-MYERS SQUIBB COMPANY-12788394

PATIENT
  Age: 67 Year
  Sex: Female
  Weight: 72 kg

DRUGS (6)
  1. PRAVACHOL [Suspect]
     Indication: BLOOD CHOLESTEROL INCREASED
     Route: 048
     Dates: start: 20040906, end: 20041206
  2. PLAVIX [Concomitant]
     Indication: ARTERIAL OCCLUSIVE DISEASE
     Route: 048
     Dates: start: 20040609, end: 20041206
  3. ZETIA [Concomitant]
     Dates: start: 20040901
  4. BENICAR [Concomitant]
     Dates: start: 20010501
  5. ATENOLOL [Concomitant]
     Dates: start: 20010501
  6. ASPIRIN [Concomitant]
     Dates: start: 20010501

REACTIONS (1)
  - ALOPECIA [None]
